FAERS Safety Report 10515034 (Version 1)
Quarter: 2014Q4

REPORT INFORMATION
  Report Type: Spontaneous
  Country: FR (occurrence: FR)
  Receive Date: 20141013
  Receipt Date: 20141013
  Transmission Date: 20150528
  Serious: Yes (Hospitalization)
  Sender: FDA-Public Use
  Company Number: PHHY2014FR132172

PATIENT
  Age: 49 Year
  Sex: Male
  Weight: 107 kg

DRUGS (7)
  1. VOLTARENE [Suspect]
     Active Substance: DICLOFENAC SODIUM
     Indication: SCIATICA
     Dosage: 75 MG, BID
     Route: 048
     Dates: start: 20140812, end: 20140825
  2. ACETAMINOPHEN AND CODEINE [Concomitant]
     Active Substance: ACETAMINOPHEN\CODEINE PHOSPHATE
     Indication: INTERVERTEBRAL DISC PROTRUSION
  3. FENOFIBRATE. [Concomitant]
     Active Substance: FENOFIBRATE
     Indication: PRODUCT USED FOR UNKNOWN INDICATION
     Dosage: 1 UNK, DAILY
     Route: 065
  4. ESOMEPRAZOLE [Concomitant]
     Active Substance: ESOMEPRAZOLE
     Indication: INTERVERTEBRAL DISC PROTRUSION
  5. ACETAMINOPHEN AND CODEINE [Concomitant]
     Active Substance: ACETAMINOPHEN\CODEINE PHOSPHATE
     Indication: SCIATICA
     Dosage: 2 UNK, DAILY
     Route: 065
     Dates: start: 20140812
  6. ALTIM//CORTIVAZOL [Suspect]
     Active Substance: CORTIVAZOL
     Indication: SCIATICA
     Dosage: 1 DF, DAILY
     Route: 065
     Dates: start: 20140623, end: 20140623
  7. ESOMEPRAZOLE [Concomitant]
     Active Substance: ESOMEPRAZOLE
     Indication: SCIATICA
     Dosage: 20 MG, DAILY
     Route: 065
     Dates: start: 20140812

REACTIONS (2)
  - Abscess [Recovered/Resolved with Sequelae]
  - Pyrexia [Recovered/Resolved]

NARRATIVE: CASE EVENT DATE: 201408
